FAERS Safety Report 12535651 (Version 1)
Quarter: 2016Q3

REPORT INFORMATION
  Report Type: Spontaneous
  Country: US (occurrence: None)
  Receive Date: 20160706
  Receipt Date: 20160706
  Transmission Date: 20161109
  Serious: Yes (Hospitalization)
  Sender: FDA-Public Use
  Company Number: None

PATIENT
  Age: 68 Year
  Sex: Male
  Weight: 74.1 kg

DRUGS (1)
  1. ELBASVIR/GRAZOPREVIR [Suspect]
     Active Substance: ELBASVIR\GRAZOPREVIR
     Indication: ISCHAEMIC STROKE
     Dosage: 50/100 MG EVERY DAY PO
     Route: 048
     Dates: start: 20160622

REACTIONS (1)
  - Transient ischaemic attack [None]

NARRATIVE: CASE EVENT DATE: 20160629
